FAERS Safety Report 18352314 (Version 1)
Quarter: 2020Q4

REPORT INFORMATION
  Report Type: Spontaneous
  Country: US (occurrence: US)
  Receive Date: 20201006
  Receipt Date: 20201006
  Transmission Date: 20210114
  Serious: Yes (Disabling, Other)
  Sender: FDA-Public Use
  Company Number: US-PURDUE-USA-2002-0168573

PATIENT
  Sex: Male

DRUGS (5)
  1. OXYCODONE HCL CR TABLETS (SIMILAR TO NDA 22-272) [Suspect]
     Active Substance: OXYCODONE HYDROCHLORIDE
     Indication: PAIN
     Dosage: UNK
     Route: 048
  2. OXYCONTIN [Suspect]
     Active Substance: OXYCODONE HYDROCHLORIDE
     Indication: PAIN
  3. OXYCODONE HCL TABLETS (91-490) [Suspect]
     Active Substance: OXYCODONE HYDROCHLORIDE
     Indication: PAIN
     Dosage: UNK
     Route: 048
  4. OXYIR [Suspect]
     Active Substance: OXYCODONE HYDROCHLORIDE
     Indication: PRODUCT USED FOR UNKNOWN INDICATION
     Dosage: UNK
     Route: 065
  5. OXYCONTIN [Suspect]
     Active Substance: OXYCODONE HYDROCHLORIDE
     Indication: PAIN
     Dosage: UNK
     Route: 048

REACTIONS (14)
  - Withdrawal syndrome [Unknown]
  - Pain [Unknown]
  - Emotional distress [Unknown]
  - Drug dependence [Unknown]
  - Hypertension [Unknown]
  - Disability [Unknown]
  - Headache [Unknown]
  - Fear [Unknown]
  - Unevaluable event [Unknown]
  - Stress [Unknown]
  - Myocardial infarction [Unknown]
  - Depression [Unknown]
  - Post-traumatic stress disorder [Unknown]
  - Feeling of despair [Unknown]
